FAERS Safety Report 5944770-X (Version None)
Quarter: 2008Q4

REPORT INFORMATION
  Report Type: 
  Country: None (occurrence: None)
  Receive Date: 20081106
  Receipt Date: 20081106
  Transmission Date: 20090506
  Serious: Yes (Other)
  Sender: FDA-Public Use
  Company Number: None

PATIENT
  Age: 50 Year
  Sex: Female
  Weight: 79.8331 kg

DRUGS (1)
  1. SSD [Suspect]
     Indication: THERMAL BURN
     Dosage: ENOUGH TO COVER BURN TWICE A DAY TOP
     Route: 061
     Dates: start: 20081028, end: 20081030

REACTIONS (6)
  - ANEURYSM [None]
  - DIZZINESS [None]
  - DRUG HYPERSENSITIVITY [None]
  - HEADACHE [None]
  - MENINGITIS [None]
  - NAUSEA [None]
